FAERS Safety Report 5611712-6 (Version None)
Quarter: 2008Q1

REPORT INFORMATION
  Report Type: 
  Country: None (occurrence: None)
  Receive Date: 20080201
  Receipt Date: 20080124
  Transmission Date: 20080703
  Serious: Yes (Other)
  Sender: FDA-Public Use
  Company Number: JP-MERCK-0801USA05577

PATIENT
  Age: 18 Year
  Sex: Male

DRUGS (6)
  1. SINGULAIR [Suspect]
     Indication: ASTHMA
     Route: 048
     Dates: start: 20071024, end: 20071219
  2. KLARICID [Concomitant]
     Route: 048
     Dates: start: 20071024, end: 20071030
  3. HOKUNALIN [Concomitant]
     Route: 061
     Dates: start: 20071024, end: 20071106
  4. [THERAPY UNSPECIFIED] [Concomitant]
     Route: 048
     Dates: start: 20071024, end: 20071030
  5. MUCODYNE [Concomitant]
     Route: 048
     Dates: start: 20071024, end: 20071030
  6. FLUTIDE [Concomitant]
     Dates: start: 20071024

REACTIONS (1)
  - HEPATIC FUNCTION ABNORMAL [None]
